APPROVED DRUG PRODUCT: ATHROMBIN
Active Ingredient: WARFARIN SODIUM
Strength: 5MG
Dosage Form/Route: TABLET;ORAL
Application: N011771 | Product #003
Applicant: PHARMACEUTICAL RESEARCH ASSOC INC
Approved: Approved Prior to Jan 1, 1982 | RLD: No | RS: No | Type: DISCN